FAERS Safety Report 6368199-8 (Version None)
Quarter: 2009Q3

REPORT INFORMATION
  Report Type: 
  Country: None (occurrence: None)
  Receive Date: 20090922
  Receipt Date: 20090909
  Transmission Date: 20100115
  Serious: Yes (Hospitalization, Other)
  Sender: FDA-Public Use
  Company Number: US-ELI_LILLY_AND_COMPANY-US200909002093

PATIENT
  Sex: Male

DRUGS (4)
  1. CIALIS [Suspect]
     Dosage: 20 MG, UNKNOWN
     Route: 065
     Dates: start: 20060101
  2. CIALIS [Suspect]
     Dosage: 40 MG, UNKNOWN
     Route: 065
     Dates: start: 20090801
  3. LIPITOR [Concomitant]
     Dosage: UNK, DAILY (1/D)
     Route: 065
  4. NABUMETONE [Concomitant]
     Dosage: UNK, UNKNOWN
     Route: 065

REACTIONS (6)
  - FALL [None]
  - HERNIA [None]
  - INTENTIONAL OVERDOSE [None]
  - ROTATOR CUFF SYNDROME [None]
  - THERAPEUTIC RESPONSE DECREASED [None]
  - UPPER LIMB FRACTURE [None]
